FAERS Safety Report 6745937-3 (Version None)
Quarter: 2010Q2

REPORT INFORMATION
  Report Type: 
  Country: None (occurrence: None)
  Receive Date: 20100528
  Receipt Date: 20100514
  Transmission Date: 20101027
  Serious: Yes (Other)
  Sender: FDA-Public Use
  Company Number: ES-ELI_LILLY_AND_COMPANY-ES201005003899

PATIENT
  Sex: Female
  Weight: 70 kg

DRUGS (3)
  1. FORTEO [Suspect]
     Indication: OSTEOPOROSIS
     Dosage: 20 UG, DAILY (1/D)
     Route: 058
     Dates: start: 20100304, end: 20100430
  2. ISONIAZID [Concomitant]
     Indication: THROMBOCYTOPENIA
     Dosage: 500 MG,(1 A DAY 2 AT WEEKENDS)
     Route: 048
  3. ADIRO [Concomitant]
     Dosage: 100 MG, DAILY (1/D)
     Route: 065

REACTIONS (4)
  - AMNESIA [None]
  - FAECAL INCONTINENCE [None]
  - SPEECH DISORDER [None]
  - URINARY INCONTINENCE [None]
